FAERS Safety Report 8343399-6 (Version None)
Quarter: 2012Q2

REPORT INFORMATION
  Report Type: 
  Country: None (occurrence: None)
  Receive Date: 20120508
  Receipt Date: 20120503
  Transmission Date: 20120825
  Serious: Yes (Hospitalization)
  Sender: FDA-Public Use
  Company Number: DE-BRISTOL-MYERS SQUIBB COMPANY-16544074

PATIENT
  Age: 63 Year
  Sex: Female

DRUGS (3)
  1. ONGLYZA [Suspect]
     Indication: TYPE 2 DIABETES MELLITUS
     Dates: start: 20100901
  2. SIMVASTATIN [Suspect]
  3. INSULIN [Suspect]

REACTIONS (2)
  - PANCREATIC CARCINOMA [None]
  - METASTASES TO LIVER [None]
